FAERS Safety Report 22400010 (Version 1)
Quarter: 2023Q2

REPORT INFORMATION
  Report Type: Spontaneous
  Country: KR (occurrence: KR)
  Receive Date: 20230602
  Receipt Date: 20230602
  Transmission Date: 20230721
  Serious: Yes (Hospitalization)
  Sender: FDA-Public Use
  Company Number: KR-ORGANON-O2305KOR003063

PATIENT
  Age: 76 Year
  Sex: Female

DRUGS (3)
  1. COZAAR [Suspect]
     Active Substance: LOSARTAN POTASSIUM
     Indication: Essential hypertension
     Dosage: 50 MILLIGRAM, ONCE A DAY (QD); FORMULATION: FILM-COATED TABLETS
     Route: 048
  2. MONTELUKAST SODIUM [Concomitant]
     Active Substance: MONTELUKAST SODIUM
     Indication: Asthma
     Dosage: 10 MILLIGRAM, ONCE A DAY (QD)
     Route: 048
  3. TRIMETAZIDINE DIHYDROCHLORIDE [Concomitant]
     Active Substance: TRIMETAZIDINE DIHYDROCHLORIDE
     Indication: Essential hypertension
     Dosage: 35 MILLIGRAM, ONCE A DAY (QD)
     Route: 048

REACTIONS (1)
  - Gastroenteritis [Recovering/Resolving]

NARRATIVE: CASE EVENT DATE: 20210408
